FAERS Safety Report 16067149 (Version 1)
Quarter: 2019Q1

REPORT INFORMATION
  Report Type: Spontaneous
  Country: CA (occurrence: CA)
  Receive Date: 20190313
  Receipt Date: 20190313
  Transmission Date: 20190418
  Serious: Yes (Other)
  Sender: FDA-Public Use
  Company Number: CA-TERSERA THERAPEUTICS LLC-TSR2018000624

PATIENT

DRUGS (2)
  1. ZOLADEX [Suspect]
     Active Substance: GOSERELIN ACETATE
     Indication: PROSTATE CANCER
     Dosage: 10.8 MG Q12 WEEKS
     Route: 058
     Dates: start: 20160211, end: 201802
  2. ZOLADEX [Suspect]
     Active Substance: GOSERELIN ACETATE
     Dosage: 10.8 MG Q12 WEEKS
     Route: 058
     Dates: start: 20190305

REACTIONS (2)
  - Hot flush [Not Recovered/Not Resolved]
  - Malignant neoplasm progression [Unknown]
